FAERS Safety Report 14071812 (Version 1)
Quarter: 2017Q4

REPORT INFORMATION
  Report Type: Spontaneous
  Country: US (occurrence: US)
  Receive Date: 20171010
  Receipt Date: 20171010
  Transmission Date: 20180321
  Serious: No
  Sender: FDA-Public Use
  Company Number: US-SA-2017SA138271

PATIENT
  Age: 50 Year
  Sex: Female

DRUGS (21)
  1. NITROSTAT [Concomitant]
     Active Substance: NITROGLYCERIN
  2. RANITIDINE. [Concomitant]
     Active Substance: RANITIDINE
  3. ALBUTEROL. [Concomitant]
     Active Substance: ALBUTEROL
  4. TRESIBA [Concomitant]
     Active Substance: INSULIN DEGLUDEC
  5. FOLIC ACID. [Concomitant]
     Active Substance: FOLIC ACID
  6. VENTOLIN [Concomitant]
     Active Substance: ALBUTEROL SULFATE
  7. VITAMIN D3 [Concomitant]
     Active Substance: CHOLECALCIFEROL
  8. FLUTICASONE. [Concomitant]
     Active Substance: FLUTICASONE
  9. ISOSORBIDE. [Concomitant]
     Active Substance: ISOSORBIDE
  10. BETAMETHASONE. [Concomitant]
     Active Substance: BETAMETHASONE
  11. HUMALOG [Concomitant]
     Active Substance: INSULIN LISPRO
  12. INDAPAMIDE. [Concomitant]
     Active Substance: INDAPAMIDE
  13. DUPIXENT [Suspect]
     Active Substance: DUPILUMAB
     Indication: IDIOPATHIC URTICARIA
     Route: 058
     Dates: start: 20170613
  14. SIMVASTATIN. [Concomitant]
     Active Substance: SIMVASTATIN
  15. LOSARTAN. [Concomitant]
     Active Substance: LOSARTAN
  16. AMLODIPINE [Concomitant]
     Active Substance: AMLODIPINE BESYLATE
  17. CLONAZEPAM. [Concomitant]
     Active Substance: CLONAZEPAM
  18. EPIPEN [Concomitant]
     Active Substance: EPINEPHRINE
  19. MONTELUKAST [Concomitant]
     Active Substance: MONTELUKAST SODIUM
  20. ZOFRAN [Concomitant]
     Active Substance: ONDANSETRON HYDROCHLORIDE
  21. METOCLOPRAMIDE. [Concomitant]
     Active Substance: METOCLOPRAMIDE

REACTIONS (2)
  - Idiopathic urticaria [Not Recovered/Not Resolved]
  - Condition aggravated [Not Recovered/Not Resolved]

NARRATIVE: CASE EVENT DATE: 201706
